FAERS Safety Report 4397279-1 (Version None)
Quarter: 2004Q3

REPORT INFORMATION
  Report Type: 
  Country: None (occurrence: None)
  Receive Date: 20040708
  Receipt Date: 20040623
  Transmission Date: 20050211
  Serious: No
  Sender: FDA-Public Use
  Company Number: 2004SE03643

PATIENT
  Age: 37 Year
  Sex: Female
  Weight: 70 kg

DRUGS (5)
  1. TENORMIN [Suspect]
     Indication: ESSENTIAL HYPERTENSION
     Dosage: 25 MG DAILY PO
     Route: 048
     Dates: start: 20031201, end: 20040506
  2. TENORMIN [Suspect]
     Indication: ESSENTIAL HYPERTENSION
     Dosage: 50 MG DAILY PO
     Route: 048
     Dates: start: 20040503, end: 20040507
  3. TENORMIN [Suspect]
     Indication: ESSENTIAL HYPERTENSION
     Dosage: 25 MG DAILY PO
     Route: 048
  4. ZYNTABAC [Suspect]
     Indication: TOBACCO ABUSE
     Dosage: 150 MG DAILY PO
     Route: 048
     Dates: start: 20040503, end: 20040507
  5. AMOXICILLIN [Concomitant]

REACTIONS (5)
  - BRADYCARDIA [None]
  - DIZZINESS [None]
  - PALPITATIONS [None]
  - SYNCOPE [None]
  - TREMOR [None]
